FAERS Safety Report 5846470-3 (Version None)
Quarter: 2008Q3

REPORT INFORMATION
  Report Type: 
  Country: None (occurrence: None)
  Receive Date: 20080815
  Receipt Date: 20080806
  Transmission Date: 20090109
  Serious: Yes (Other)
  Sender: FDA-Public Use
  Company Number: US-JNJFOC-20080801725

PATIENT
  Sex: Female
  Weight: 105.24 kg

DRUGS (2)
  1. DURAGESIC-100 [Suspect]
     Indication: PAIN
     Route: 062
  2. CIPROFLOXACIN [Concomitant]
     Indication: CYSTITIS
     Route: 048

REACTIONS (4)
  - CYSTITIS [None]
  - INAPPROPRIATE SCHEDULE OF DRUG ADMINISTRATION [None]
  - THYROID FUNCTION TEST ABNORMAL [None]
  - WRONG TECHNIQUE IN DRUG USAGE PROCESS [None]
